FAERS Safety Report 6286833-8 (Version None)
Quarter: 2009Q3

REPORT INFORMATION
  Report Type: 
  Country: None (occurrence: None)
  Receive Date: 20090728
  Receipt Date: 20090720
  Transmission Date: 20100115
  Serious: Yes (Death)
  Sender: FDA-Public Use
  Company Number: NO-BRISTOL-MYERS SQUIBB COMPANY-14707574

PATIENT

DRUGS (9)
  1. CYCLOPHOSPHAMIDE [Suspect]
     Indication: LYMPHOMA
     Route: 065
  2. ETOPOSIDE [Suspect]
     Indication: LYMPHOMA
     Route: 042
  3. VINCRISTINE SULFATE [Suspect]
     Indication: LYMPHOMA
     Route: 065
  4. DOXORUBICIN HCL [Suspect]
     Indication: LYMPHOMA
     Route: 065
  5. RITUXIMAB [Suspect]
     Indication: LYMPHOMA
     Route: 065
  6. PREDNISONE [Suspect]
     Indication: LYMPHOMA
     Route: 065
  7. METHOTREXATE [Concomitant]
     Indication: LYMPHOMA
     Dosage: 3 DOSAGE FORM: 3 GRAMS PER METERS SQUARED
     Route: 065
  8. CYTARABINE [Concomitant]
     Indication: LYMPHOMA
     Dosage: 12 DOSAGE FORM= 12 GRAMS PER METERS SQUARED
     Route: 065
  9. PEGFILGRASTIM [Concomitant]
     Indication: LYMPHOMA
     Route: 058

REACTIONS (1)
  - LARGE INTESTINE PERFORATION [None]
